FAERS Safety Report 21010739 (Version 1)
Quarter: 2022Q2

REPORT INFORMATION
  Report Type: Spontaneous
  Country: CA (occurrence: CA)
  Receive Date: 20220627
  Receipt Date: 20220627
  Transmission Date: 20220721
  Serious: Yes (Death, Other)
  Sender: FDA-Public Use
  Company Number: CA-PFIZER INC-202101040163

PATIENT
  Age: 30 Year
  Sex: Female
  Weight: 70 kg

DRUGS (21)
  1. ZIRABEV [Suspect]
     Active Substance: BEVACIZUMAB-BVZR
     Indication: Glioblastoma
     Dosage: 800 MG EVERY 3 WEEKS
     Route: 042
     Dates: start: 20210809
  2. ZIRABEV [Suspect]
     Active Substance: BEVACIZUMAB-BVZR
     Dosage: 1000 MG EVERY 3 WEEKS
     Route: 042
     Dates: start: 20210809
  3. ZIRABEV [Suspect]
     Active Substance: BEVACIZUMAB-BVZR
     Dosage: 200 MG EVERY 3 WEEKS
     Route: 042
     Dates: start: 20210809
  4. ZIRABEV [Suspect]
     Active Substance: BEVACIZUMAB-BVZR
     Dosage: 800 MG EVERY 3 WEEKS
     Route: 042
     Dates: start: 20210830
  5. ZIRABEV [Suspect]
     Active Substance: BEVACIZUMAB-BVZR
     Dosage: 200 MG EVERY 3 WEEKS
     Route: 042
     Dates: start: 20210830
  6. ZIRABEV [Suspect]
     Active Substance: BEVACIZUMAB-BVZR
     Dosage: 800 MG EVERY 3 WEEKS
     Route: 042
     Dates: start: 20210920
  7. ZIRABEV [Suspect]
     Active Substance: BEVACIZUMAB-BVZR
     Dosage: 200 MG EVERY 3 WEEKS
     Route: 042
     Dates: start: 20210920
  8. ZIRABEV [Suspect]
     Active Substance: BEVACIZUMAB-BVZR
     Dosage: 1000 MG EVERY 3 WEEKS
     Route: 042
     Dates: start: 20211013
  9. ZIRABEV [Suspect]
     Active Substance: BEVACIZUMAB-BVZR
     Dosage: 1000 MG EVERY 3 WEEKS
     Route: 042
     Dates: start: 20211013
  10. ZIRABEV [Suspect]
     Active Substance: BEVACIZUMAB-BVZR
     Dosage: 1000 MG EVERY 3 WEEKS
     Route: 042
     Dates: start: 20211122
  11. ZIRABEV [Suspect]
     Active Substance: BEVACIZUMAB-BVZR
     Dosage: 1000 MG EVERY 3 WEEKS
     Route: 042
     Dates: start: 20211122
  12. ZIRABEV [Suspect]
     Active Substance: BEVACIZUMAB-BVZR
     Dosage: 1000 MG EVERY 3 WEEKS
     Route: 042
     Dates: start: 20220104
  13. ZIRABEV [Suspect]
     Active Substance: BEVACIZUMAB-BVZR
     Dosage: 1000 MG EVERY 3 WEEKS
     Route: 042
     Dates: start: 20220104
  14. ZIRABEV [Suspect]
     Active Substance: BEVACIZUMAB-BVZR
     Dosage: 200 MG EVERY 3 WEEKS
     Route: 042
     Dates: start: 20220124
  15. ZIRABEV [Suspect]
     Active Substance: BEVACIZUMAB-BVZR
     Dosage: 800 MG EVERY 3 WEEKS
     Route: 042
     Dates: start: 20220124
  16. DEXAMETHASONE [Concomitant]
     Active Substance: DEXAMETHASONE
     Dosage: 4 MG
     Route: 048
  17. DEXAMETHASONE [Concomitant]
     Active Substance: DEXAMETHASONE
     Dosage: UNKNOWN
     Route: 048
     Dates: start: 20220113
  18. DEXAMETHASONE [Concomitant]
     Active Substance: DEXAMETHASONE
     Dosage: 2 MG
     Route: 048
     Dates: start: 20220124
  19. LOMUSTINE [Concomitant]
     Active Substance: LOMUSTINE
     Dosage: UNK
  20. LEVETIRACETAM [Concomitant]
     Active Substance: LEVETIRACETAM
     Dosage: UNK
  21. PANTOPRAZOLE SODIUM [Concomitant]
     Active Substance: PANTOPRAZOLE SODIUM
     Dosage: 40 MG
     Route: 048
     Dates: start: 20220124

REACTIONS (11)
  - Death [Fatal]
  - Wound infection [Unknown]
  - Heart rate decreased [Unknown]
  - Mood swings [Unknown]
  - Weight increased [Unknown]
  - Neoplasm progression [Unknown]
  - Decreased appetite [Unknown]
  - Eating disorder [Unknown]
  - Inappropriate schedule of product administration [Unknown]
  - Off label use [Unknown]
  - Product dose omission issue [Unknown]

NARRATIVE: CASE EVENT DATE: 20210809
